FAERS Safety Report 21003667 (Version 1)
Quarter: 2022Q2

REPORT INFORMATION
  Report Type: Spontaneous
  Country: DE (occurrence: None)
  Receive Date: 20220624
  Receipt Date: 20220624
  Transmission Date: 20220721
  Serious: Yes (Other)
  Sender: FDA-Public Use
  Company Number: DE-ROCHE-3117595

PATIENT
  Age: 55 Year
  Sex: Female

DRUGS (3)
  1. OCREVUS [Suspect]
     Active Substance: OCRELIZUMAB
     Indication: Relapsing-remitting multiple sclerosis
     Route: 042
     Dates: start: 2018
  2. METAMIZOLE [Concomitant]
     Active Substance: METAMIZOLE
     Indication: Pain
     Dosage: ONGOING
     Route: 048
  3. TIZANIDINE [Concomitant]
     Active Substance: TIZANIDINE
     Indication: Muscle spasticity
     Dosage: ONGOING
     Route: 048

REACTIONS (6)
  - Gamma-glutamyltransferase increased [Unknown]
  - Tonsillitis [Recovered/Resolved]
  - Platelet count increased [Unknown]
  - Neutrophil count decreased [Unknown]
  - Lymphocyte count increased [Unknown]
  - Monocyte count increased [Unknown]

NARRATIVE: CASE EVENT DATE: 20220301
